FAERS Safety Report 9270362 (Version 1)
Quarter: 2013Q2

REPORT INFORMATION
  Report Type: Spontaneous
  Country: US (occurrence: US)
  Receive Date: 20130503
  Receipt Date: 20130503
  Transmission Date: 20140414
  Serious: No
  Sender: FDA-Public Use
  Company Number: US-BAYER-2013-055116

PATIENT
  Age: 22 Year
  Sex: Female

DRUGS (1)
  1. FINACEA [Suspect]
     Indication: ACNE
     Dosage: UNK
     Route: 061
     Dates: start: 20130406, end: 20130408

REACTIONS (2)
  - Skin irritation [Recovered/Resolved]
  - Dry skin [Recovered/Resolved]
